FAERS Safety Report 6970197-8 (Version None)
Quarter: 2010Q3

REPORT INFORMATION
  Report Type: 
  Country: None (occurrence: None)
  Receive Date: 20100823
  Receipt Date: 20100524
  Transmission Date: 20110219
  Serious: No
  Sender: FDA-Public Use
  Company Number: 012596

PATIENT
  Sex: Female
  Weight: 51.3 kg

DRUGS (4)
  1. CIMZIA [Suspect]
     Indication: CROHN'S DISEASE
     Dosage: SUBCUTANEOUS
     Route: 058
     Dates: start: 20100101
  2. VITAMIN D [Concomitant]
  3. PLAVIX [Concomitant]
  4. ACETYLSALICYLIC ACID [Concomitant]

REACTIONS (2)
  - FATIGUE [None]
  - MYALGIA [None]
